FAERS Safety Report 4444081-8 (Version None)
Quarter: 2004Q3

REPORT INFORMATION
  Report Type: 
  Country: None (occurrence: None)
  Receive Date: 20040729
  Receipt Date: 20040217
  Transmission Date: 20050211
  Serious: Yes (Hospitalization)
  Sender: FDA-Public Use
  Company Number: US-JNJFOC-20040203721

PATIENT
  Age: 19 Year
  Sex: Female

DRUGS (4)
  1. RISPERDAL [Suspect]
     Indication: PSYCHOTIC DISORDER
     Dosage: 4 MG, IN 1 DAY, ORAL
     Route: 048
  2. CANNABIS (CANNABIS) [Suspect]
  3. LORAZEPAM [Suspect]
     Indication: CATATONIA
     Dosage: 9 MG, IN 1 DAY; 3 MG,  IN 1 DAY
  4. DIVALPROEX (VALPROATE SEMISODIUM) [Suspect]
     Indication: CATATONIA

REACTIONS (4)
  - AGITATION [None]
  - CATATONIA [None]
  - DRUG ABUSER [None]
  - SEDATION [None]
